FAERS Safety Report 7504925-X (Version None)
Quarter: 2011Q2

REPORT INFORMATION
  Report Type: 
  Country: None (occurrence: None)
  Receive Date: 20110526
  Receipt Date: 20110517
  Transmission Date: 20111010
  Serious: Yes (Death)
  Sender: FDA-Public Use
  Company Number: US-BIOGENIDEC-2011BI014886

PATIENT
  Age: 69 Year
  Sex: Female

DRUGS (1)
  1. AVONEX [Suspect]
     Indication: MULTIPLE SCLEROSIS
     Route: 030
     Dates: start: 19960101

REACTIONS (6)
  - SMALL INTESTINAL PERFORATION [None]
  - RESPIRATORY FAILURE [None]
  - SEPSIS [None]
  - MULTI-ORGAN FAILURE [None]
  - ABDOMINAL HERNIA [None]
  - ABDOMINAL PAIN [None]
